FAERS Safety Report 16302941 (Version 3)
Quarter: 2022Q3

REPORT INFORMATION
  Report Type: Spontaneous
  Country: US (occurrence: None)
  Receive Date: 20190513
  Receipt Date: 20220707
  Transmission Date: 20221027
  Serious: Yes (Death, Hospitalization, Other)
  Sender: FDA-Public Use
  Company Number: 2019SE65260

PATIENT
  Age: 25219 Day
  Sex: Male
  Weight: 104.3 kg

DRUGS (59)
  1. NEXIUM [Suspect]
     Active Substance: ESOMEPRAZOLE MAGNESIUM
     Indication: Gastrooesophageal reflux disease
     Route: 048
     Dates: start: 199605, end: 199709
  2. NEXIUM [Suspect]
     Active Substance: ESOMEPRAZOLE MAGNESIUM
     Indication: Gastrooesophageal reflux disease
     Route: 048
     Dates: start: 20090622, end: 20170214
  3. PRILOSEC [Suspect]
     Active Substance: OMEPRAZOLE MAGNESIUM
     Indication: Gastrooesophageal reflux disease
     Route: 048
     Dates: start: 199605, end: 199709
  4. PRILOSEC [Suspect]
     Active Substance: OMEPRAZOLE MAGNESIUM
     Indication: Gastrooesophageal reflux disease
     Route: 048
     Dates: start: 19981014, end: 20030103
  5. PRILOSEC [Suspect]
     Active Substance: OMEPRAZOLE MAGNESIUM
     Indication: Gastrooesophageal reflux disease
     Route: 048
     Dates: start: 20110516, end: 20170214
  6. PRILOSEC [Suspect]
     Active Substance: OMEPRAZOLE MAGNESIUM
     Indication: Gastrooesophageal reflux disease
     Dosage: GENERIC
     Route: 065
     Dates: start: 20030211, end: 20131109
  7. PRILOSEC [Suspect]
     Active Substance: OMEPRAZOLE MAGNESIUM
     Indication: Gastrooesophageal reflux disease
     Dosage: GENERIC
     Route: 065
     Dates: start: 20081219, end: 20120216
  8. PREVACID [Suspect]
     Active Substance: LANSOPRAZOLE
     Indication: Gastrooesophageal reflux disease
     Route: 065
     Dates: start: 199605, end: 199709
  9. PREVACID [Suspect]
     Active Substance: LANSOPRAZOLE
     Indication: Gastrooesophageal reflux disease
     Route: 065
     Dates: start: 19960620, end: 20030321
  10. PREVACID [Suspect]
     Active Substance: LANSOPRAZOLE
     Indication: Gastrooesophageal reflux disease
     Route: 065
     Dates: start: 20110516, end: 20170214
  11. PANTOPRAZOLE [Suspect]
     Active Substance: PANTOPRAZOLE
     Indication: Gastrooesophageal reflux disease
     Route: 065
     Dates: start: 20100411, end: 20100816
  12. METOPROLOL [Concomitant]
     Active Substance: METOPROLOL
     Indication: Hypertension
     Dates: start: 1997
  13. PLAVIX [Concomitant]
     Active Substance: CLOPIDOGREL BISULFATE
     Indication: Cardiovascular disorder
     Dates: start: 2010, end: 2011
  14. ESCIN/LEVOTHYROXINE [Concomitant]
     Indication: Thyroid disorder
     Dates: start: 2012
  15. ZANTAC [Concomitant]
     Active Substance: RANITIDINE HYDROCHLORIDE
     Dates: start: 19960220, end: 19960525
  16. PEPTO-BISMOL [Concomitant]
     Active Substance: BISMUTH SUBSALICYLATE
     Dosage: AS NEEDED
     Dates: start: 19951025, end: 19960123
  17. MICARDIS [Concomitant]
     Active Substance: TELMISARTAN
  18. FUROSEMIDE [Concomitant]
     Active Substance: FUROSEMIDE
  19. GABAPENTIN [Concomitant]
     Active Substance: GABAPENTIN
  20. LANTUS [Concomitant]
     Active Substance: INSULIN GLARGINE
  21. SYNTHROID [Concomitant]
     Active Substance: LEVOTHYROXINE SODIUM
  22. RAMIPRIL [Concomitant]
     Active Substance: RAMIPRIL
  23. TAMSULOSIN [Concomitant]
     Active Substance: TAMSULOSIN
  24. NOVOLOG [Concomitant]
     Active Substance: INSULIN ASPART
  25. AMLODIPINE [Concomitant]
     Active Substance: AMLODIPINE BESYLATE
  26. METFORMIN [Concomitant]
     Active Substance: METFORMIN HYDROCHLORIDE
  27. ZOSTAVAX [Concomitant]
     Active Substance: VARICELLA-ZOSTER VIRUS STRAIN OKA/MERCK LIVE ANTIGEN
  28. ZOLPIDEM [Concomitant]
     Active Substance: ZOLPIDEM TARTRATE
  29. TRICOR [Concomitant]
     Active Substance: FENOFIBRATE
  30. PROAIR HFA [Concomitant]
     Active Substance: ALBUTEROL SULFATE
  31. PREDNISONE [Concomitant]
     Active Substance: PREDNISONE
  32. NAPROXEN [Concomitant]
     Active Substance: NAPROXEN
  33. LISINOPRIL [Concomitant]
     Active Substance: LISINOPRIL
  34. LOVASTATIN [Concomitant]
     Active Substance: LOVASTATIN
  35. CYCLOBENZAPRINE [Concomitant]
     Active Substance: CYCLOBENZAPRINE
  36. CEPHALEXIN [Concomitant]
     Active Substance: CEPHALEXIN
  37. ZALEPLON [Concomitant]
     Active Substance: ZALEPLON
  38. GLIMEPIRIDE [Concomitant]
     Active Substance: GLIMEPIRIDE
  39. NITROSTAT [Concomitant]
     Active Substance: NITROGLYCERIN
  40. STIOLTO RESPIMAT [Concomitant]
     Active Substance: OLODATEROL HYDROCHLORIDE\TIOTROPIUM BROMIDE MONOHYDRATE
  41. NORCO [Concomitant]
     Active Substance: ACETAMINOPHEN\HYDROCODONE BITARTRATE
  42. ACTOS [Concomitant]
     Active Substance: PIOGLITAZONE HYDROCHLORIDE
  43. IMDUR [Concomitant]
     Active Substance: ISOSORBIDE MONONITRATE
  44. INVOKANA [Concomitant]
     Active Substance: CANAGLIFLOZIN
  45. ACTOPLUS MET [Concomitant]
     Active Substance: METFORMIN HYDROCHLORIDE\PIOGLITAZONE HYDROCHLORIDE
  46. SYMBICORT [Concomitant]
     Active Substance: BUDESONIDE\FORMOTEROL FUMARATE DIHYDRATE
  47. ACETAMINOPHEN [Concomitant]
     Active Substance: ACETAMINOPHEN
  48. COREG [Concomitant]
     Active Substance: CARVEDILOL
  49. RELAFEN [Concomitant]
     Active Substance: NABUMETONE
     Dates: start: 19970406
  50. ADALAT [Concomitant]
     Active Substance: NIFEDIPINE
     Dates: start: 19970406
  51. PRANDIN [Concomitant]
     Active Substance: REPAGLINIDE
     Dates: start: 19990217
  52. TRIAMCINOLONE [Concomitant]
     Active Substance: TRIAMCINOLONE
     Dates: start: 19990217
  53. CRESTOR [Concomitant]
     Active Substance: ROSUVASTATIN CALCIUM
     Dates: start: 19990217
  54. CARDURA [Concomitant]
     Active Substance: DOXAZOSIN MESYLATE
     Dates: start: 19990217
  55. INSULIN NOS [Concomitant]
     Active Substance: INSULIN NOS
     Dates: start: 20110105
  56. GLUCOPHAGE [Concomitant]
     Active Substance: METFORMIN HYDROCHLORIDE
     Dates: start: 20010920
  57. GLUCOPHAGE [Concomitant]
     Active Substance: METFORMIN HYDROCHLORIDE
     Dates: start: 20010920
  58. CIALIS [Concomitant]
     Active Substance: TADALAFIL
     Dates: start: 20010920
  59. CIALIS [Concomitant]
     Active Substance: TADALAFIL
     Dates: start: 20010920

REACTIONS (3)
  - Chronic kidney disease [Not Recovered/Not Resolved]
  - End stage renal disease [Fatal]
  - Renal failure [Unknown]

NARRATIVE: CASE EVENT DATE: 20110126
